FAERS Safety Report 9129206 (Version 2)
Quarter: 2013Q2

REPORT INFORMATION
  Report Type: Spontaneous
  Country: US (occurrence: US)
  Receive Date: 20130228
  Receipt Date: 20130528
  Transmission Date: 20140414
  Serious: No
  Sender: FDA-Public Use
  Company Number: US-ABBOTT-13P-163-1041732-00

PATIENT
  Age: 45 Year
  Sex: Male
  Weight: 118.04 kg

DRUGS (4)
  1. ANDROGEL [Suspect]
     Indication: BLOOD TESTOSTERONE DECREASED
     Dosage: ONE PUMP ACTUATION PER DAY
     Dates: start: 201212
  2. OMEPRAZOLE [Concomitant]
     Indication: PRODUCT USED FOR UNKNOWN INDICATION
  3. SIMVASTATIN [Concomitant]
     Indication: PRODUCT USED FOR UNKNOWN INDICATION
  4. BUPROPION [Concomitant]
     Indication: DEPRESSION

REACTIONS (4)
  - Therapeutic response unexpected [Not Recovered/Not Resolved]
  - Medication error [Unknown]
  - Feeling abnormal [Recovered/Resolved]
  - Sleep disorder [Not Recovered/Not Resolved]
